FAERS Safety Report 5917141-X (Version None)
Quarter: 2008Q4

REPORT INFORMATION
  Report Type: 
  Country: None (occurrence: None)
  Receive Date: 20081014
  Receipt Date: 20081003
  Transmission Date: 20090506
  Serious: Yes (Hospitalization)
  Sender: FDA-Public Use
  Company Number: IT-JNJFOC-20080604562

PATIENT
  Age: 78 Year
  Sex: Female

DRUGS (3)
  1. REMICADE [Suspect]
     Indication: RHEUMATOID ARTHRITIS
     Route: 042
  2. ENBREL [Suspect]
     Indication: RHEUMATOID ARTHRITIS
     Route: 058
  3. CELEBREX [Concomitant]
     Dosage: STARTED 4 YEARS AGO
     Route: 048

REACTIONS (1)
  - HEPATIC NEOPLASM MALIGNANT RESECTABLE [None]
